FAERS Safety Report 9129165 (Version 1)
Quarter: 2013Q1

REPORT INFORMATION
  Report Type: Spontaneous
  Country: US (occurrence: US)
  Receive Date: 20130125
  Receipt Date: 20130125
  Transmission Date: 20140127
  Serious: Yes (Other)
  Sender: FDA-Public Use
  Company Number: US-ELI_LILLY_AND_COMPANY-US201201006968

PATIENT
  Sex: Female

DRUGS (4)
  1. BYETTA [Suspect]
     Dosage: 5 UG, BID
     Route: 058
     Dates: start: 20100630, end: 201102
  2. METFORMIN [Concomitant]
     Dosage: 1000 MG, BID
     Route: 048
  3. LISINOPRIL [Concomitant]
     Dosage: 5 MG, QD
     Route: 048
  4. VICTOZA [Concomitant]

REACTIONS (3)
  - Pancreatitis [Recovered/Resolved]
  - Cholecystitis chronic [Unknown]
  - Cholelithiasis [Unknown]
